FAERS Safety Report 10983404 (Version 2)
Quarter: 2015Q3

REPORT INFORMATION
  Report Type: Report from Study
  Country: US (occurrence: US)
  Receive Date: 20150403
  Receipt Date: 20150722
  Transmission Date: 20151125
  Serious: Yes (Hospitalization, Other)
  Sender: FDA-Public Use
  Company Number: US-SA-2015SA040789

PATIENT
  Age: 30 Year
  Sex: Female

DRUGS (2)
  1. CEREZYME [Suspect]
     Active Substance: IMIGLUCERASE
     Indication: GAUCHER^S DISEASE
     Dosage: FREQUENCY Q2
     Route: 041
     Dates: start: 19940728
  2. CEREZYME [Suspect]
     Active Substance: IMIGLUCERASE
     Indication: GAUCHER^S DISEASE
     Dosage: FREQUENCY: Q2
     Route: 041

REACTIONS (7)
  - Anaemia [Unknown]
  - Malaise [Recovering/Resolving]
  - Hypotension [Recovering/Resolving]
  - Bronchitis [Recovering/Resolving]
  - Cystitis [Recovering/Resolving]
  - Wound [Not Recovered/Not Resolved]
  - Weight decreased [Recovering/Resolving]

NARRATIVE: CASE EVENT DATE: 2015
